FAERS Safety Report 10250058 (Version 2)
Quarter: 2014Q2

REPORT INFORMATION
  Report Type: Spontaneous
  Country: US (occurrence: US)
  Receive Date: 20140620
  Receipt Date: 20140620
  Transmission Date: 20141212
  Serious: Yes (Hospitalization)
  Sender: FDA-Public Use
  Company Number: US-BRISTOL-MYERS SQUIBB COMPANY-20613667

PATIENT
  Age: 83 Year
  Sex: Female
  Weight: 90.25 kg

DRUGS (10)
  1. ELIQUIS [Suspect]
     Indication: ATRIAL FIBRILLATION
     Dates: start: 201303, end: 201403
  2. ZETIA [Concomitant]
     Indication: BLOOD CHOLESTEROL
  3. DILTIAZEM HCL [Concomitant]
     Indication: BLOOD PRESSURE
  4. SYMBICORT [Concomitant]
     Indication: CHRONIC OBSTRUCTIVE PULMONARY DISEASE
  5. POTASSIUM [Concomitant]
  6. DIGOXIN [Concomitant]
     Indication: BLOOD PRESSURE
  7. MAGNESIUM [Concomitant]
     Indication: PALPITATIONS
  8. VITAMIN D [Concomitant]
     Indication: VITAMIN D DEFICIENCY
  9. WELCHOL [Concomitant]
     Indication: BLOOD CHOLESTEROL
  10. LASIX [Concomitant]
     Indication: OEDEMA

REACTIONS (1)
  - Pericardial haemorrhage [Recovered/Resolved]
